FAERS Safety Report 6771859-8 (Version None)
Quarter: 2010Q2

REPORT INFORMATION
  Report Type: 
  Country: None (occurrence: None)
  Receive Date: 20100616
  Receipt Date: 20090916
  Transmission Date: 20101027
  Serious: No
  Sender: FDA-Public Use
  Company Number: US-ASTRAZENECA-2009SE13507

PATIENT
  Age: 25954 Day
  Sex: Female

DRUGS (9)
  1. ENTOCORT EC [Suspect]
     Indication: CROHN'S DISEASE
     Route: 048
     Dates: start: 20090903
  2. CRESTOR [Suspect]
     Route: 048
  3. ASPIRIN [Concomitant]
  4. LISINOPRIL [Concomitant]
  5. EVISTA [Concomitant]
  6. FOLIC ACID [Concomitant]
  7. ZANTAC [Concomitant]
  8. AMBIEN [Concomitant]
  9. PREVACID [Concomitant]

REACTIONS (2)
  - ABDOMINAL PAIN UPPER [None]
  - DYSPEPSIA [None]
